FAERS Safety Report 6233714-1 (Version None)
Quarter: 2009Q2

REPORT INFORMATION
  Report Type: 
  Country: None (occurrence: None)
  Receive Date: 20090617
  Receipt Date: 20090608
  Transmission Date: 20091009
  Serious: Yes (Hospitalization)
  Sender: FDA-Public Use
  Company Number: SE-MERCK-0906SWE00002

PATIENT
  Age: 93 Year
  Sex: Female

DRUGS (11)
  1. FOSAMAX [Suspect]
     Route: 048
     Dates: end: 20090310
  2. ASPIRIN [Suspect]
     Route: 048
  3. DICLOFENAC [Suspect]
     Route: 048
     Dates: start: 20080519, end: 20090201
  4. TOLTERODINE TARTRATE [Concomitant]
     Route: 065
  5. NITROGLYCERIN [Concomitant]
     Route: 065
  6. ALBUTEROL SULFATE [Concomitant]
     Route: 065
  7. FUROSEMIDE [Concomitant]
     Route: 065
  8. SPIRONOLACTONE [Concomitant]
     Route: 065
  9. ISOSORBIDE MONONITRATE [Concomitant]
     Route: 065
  10. BISOPROLOL FUMARATE [Concomitant]
     Route: 065
  11. ACETYLCYSTEINE [Concomitant]
     Route: 065

REACTIONS (3)
  - GASTROINTESTINAL HAEMORRHAGE [None]
  - HIATUS HERNIA [None]
  - REFLUX OESOPHAGITIS [None]
